FAERS Safety Report 17160432 (Version 1)
Quarter: 2019Q4

REPORT INFORMATION
  Report Type: Spontaneous
  Country: IT (occurrence: IT)
  Receive Date: 20191216
  Receipt Date: 20191216
  Transmission Date: 20200122
  Serious: Yes (Other)
  Sender: FDA-Public Use
  Company Number: IT-MYLANLABS-2019M1122966

PATIENT
  Age: 59 Year

DRUGS (4)
  1. TICAGRELOR. [Concomitant]
     Active Substance: TICAGRELOR
     Indication: ANTICOAGULANT THERAPY
     Dosage: UNK
  2. ALLOPURINOL. [Suspect]
     Active Substance: ALLOPURINOL
     Indication: GOUT
     Dosage: 300 MILLIGRAM, QD
     Route: 048
     Dates: start: 20170718, end: 20190718
  3. NEBIVOLOL. [Concomitant]
     Active Substance: NEBIVOLOL
     Indication: ESSENTIAL HYPERTENSION
     Dosage: UNK
     Route: 048
  4. INSULIN LISPRO [Concomitant]
     Active Substance: INSULIN LISPRO
     Indication: HYPOGLYCAEMIA
     Dosage: UNK

REACTIONS (5)
  - Oedema [Unknown]
  - Pyrexia [Unknown]
  - Drug reaction with eosinophilia and systemic symptoms [Unknown]
  - Sepsis [Unknown]
  - Erythema [Unknown]

NARRATIVE: CASE EVENT DATE: 20190724
